FAERS Safety Report 9097072 (Version 1)
Quarter: 2013Q1

REPORT INFORMATION
  Report Type: Spontaneous
  Country: DE (occurrence: None)
  Receive Date: 20130123
  Receipt Date: 20130123
  Transmission Date: 20140127
  Serious: Yes (Other)
  Sender: FDA-Public Use
  Company Number: GER/GER/13/0027501

PATIENT
  Age: 26 Year
  Sex: Female
  Weight: 69.6 kg

DRUGS (5)
  1. LAMOTRIGINE (LAMOTRIGINE) [Suspect]
     Indication: EPILEPSY
     Route: 048
     Dates: start: 20120405, end: 20120730
  2. VALPROATE SODIUM [Suspect]
     Indication: EPILEPSY
     Route: 048
     Dates: start: 20120405, end: 20120730
  3. FRISIUM [Suspect]
     Indication: EPILEPSY
     Route: 048
     Dates: start: 20120405, end: 20120730
  4. ERGENYL (VALPROATE SODIUM) [Suspect]
     Indication: EPILEPSY
     Route: 048
     Dates: start: 20120405, end: 20120730
  5. YASMIN [Concomitant]

REACTIONS (2)
  - Abortion induced [None]
  - Exposure during pregnancy [None]
